FAERS Safety Report 17396084 (Version 1)
Quarter: 2020Q1

REPORT INFORMATION
  Report Type: Spontaneous
  Country: GB (occurrence: GB)
  Receive Date: 20200210
  Receipt Date: 20200210
  Transmission Date: 20200409
  Serious: Yes (Hospitalization)
  Sender: FDA-Public Use
  Company Number: GB-ELI_LILLY_AND_COMPANY-GB202001014563

PATIENT
  Age: 57 Year
  Sex: Female
  Weight: 57.7 kg

DRUGS (3)
  1. GEMCITABINE HYDROCHLORIDE. [Suspect]
     Active Substance: GEMCITABINE HYDROCHLORIDE
     Dosage: 1558 MG, UNKNOWN
     Route: 042
     Dates: start: 20190929
  2. CISPLATIN. [Suspect]
     Active Substance: CISPLATIN
     Indication: BILE DUCT CANCER
     Dosage: 30 MG/M2, UNKNOWN
     Route: 042
     Dates: start: 20190912, end: 20190919
  3. GEMCITABINE HYDROCHLORIDE. [Suspect]
     Active Substance: GEMCITABINE HYDROCHLORIDE
     Indication: BILE DUCT CANCER
     Dosage: 1558 MG, UNKNOWN
     Route: 042
     Dates: start: 20190912, end: 20190919

REACTIONS (2)
  - Off label use [Unknown]
  - Neutropenic sepsis [Not Recovered/Not Resolved]

NARRATIVE: CASE EVENT DATE: 20190930
